FAERS Safety Report 10172877 (Version 1)
Quarter: 2014Q2

REPORT INFORMATION
  Report Type: Spontaneous
  Country: US (occurrence: None)
  Receive Date: 20140514
  Receipt Date: 20140514
  Transmission Date: 20141212
  Serious: Yes (Life-Threatening, Other)
  Sender: FDA-Public Use
  Company Number: None

PATIENT
  Age: 64 Year
  Sex: Female
  Weight: 63 kg

DRUGS (5)
  1. OLYSIO [Suspect]
     Indication: HEPATITIS C
     Dosage: 1, QD, ORAL
     Route: 048
     Dates: start: 20140507, end: 20140507
  2. SOVALDI [Concomitant]
  3. DIAZEPAM [Concomitant]
  4. LOTEMAX [Concomitant]
  5. AMBIEN [Concomitant]

REACTIONS (4)
  - Urticaria [None]
  - Haemorrhage [None]
  - Dyspnoea [None]
  - Documented hypersensitivity to administered drug [None]
